FAERS Safety Report 5412742-X (Version None)
Quarter: 2007Q3

REPORT INFORMATION
  Report Type: 
  Country: None (occurrence: None)
  Receive Date: 20070809
  Receipt Date: 20070724
  Transmission Date: 20080115
  Serious: Yes (Death)
  Sender: FDA-Public Use
  Company Number: 016843

PATIENT
  Age: 10 Year
  Sex: Male

DRUGS (6)
  1. CARBOPLATIN(CARBOPLATIN) INJECTION, 50MG [Suspect]
     Indication: ASTROCYTOMA, LOW GRADE
  2. VINCRISTINE [Suspect]
     Indication: ASTROCYTOMA, LOW GRADE
     Dosage: 1.5 MG/M2, 1/WEEK
  3. DACTINOMYCIN [Suspect]
     Indication: ASTROCYTOMA, LOW GRADE
     Dosage: 15 UG/KG, QD
  4. PROCARBAZINE(PROCARBAZINE) [Suspect]
     Indication: ASTROCYTOMA, LOW GRADE
     Dosage: 200 MG/M2,
  5. LOMUSTINE(LOMUSTINE) [Suspect]
     Indication: ASTROCYTOMA, LOW GRADE
     Dosage: 100 MG/M2
  6. TIOGUANINE(TIOGUANINE) [Suspect]
     Indication: ASTROCYTOMA, LOW GRADE
     Dosage: 30 MG/M2

REACTIONS (10)
  - CONVULSION [None]
  - DRUG INTOLERANCE [None]
  - FUNGAL SEPSIS [None]
  - INAPPROPRIATE ANTIDIURETIC HORMONE SECRETION [None]
  - MARROW HYPERPLASIA [None]
  - MYELODYSPLASTIC SYNDROME [None]
  - NEUROPATHY PERIPHERAL [None]
  - PANCYTOPENIA [None]
  - PYREXIA [None]
  - RESPIRATORY FAILURE [None]
